FAERS Safety Report 10576064 (Version 1)
Quarter: 2014Q4

REPORT INFORMATION
  Report Type: Spontaneous
  Country: US (occurrence: None)
  Receive Date: 20141110
  Receipt Date: 20141110
  Transmission Date: 20150529
  Serious: No
  Sender: FDA-Public Use
  Company Number: None

PATIENT
  Age: 64 Year
  Sex: Female
  Weight: 73.9 kg

DRUGS (2)
  1. HYDROMORPHONE [Suspect]
     Active Substance: HYDROMORPHONE
     Dosage: PCA PRN/AS NEEDED INTRAVENOUS
     Route: 042
  2. MORPHINE [Concomitant]
     Active Substance: MORPHINE

REACTIONS (4)
  - Respiratory rate decreased [None]
  - Drug administration error [None]
  - Somnolence [None]
  - Sedation [None]

NARRATIVE: CASE EVENT DATE: 20141106
